FAERS Safety Report 24194041 (Version 1)
Quarter: 2024Q3

REPORT INFORMATION
  Report Type: Spontaneous
  Country: US (occurrence: US)
  Receive Date: 20240809
  Receipt Date: 20240809
  Transmission Date: 20241016
  Serious: Yes (Life-Threatening, Other)
  Sender: MERCK
  Company Number: US-009507513-2408USA000397

PATIENT
  Age: 93 Year
  Sex: Male

DRUGS (1)
  1. BRIDION [Suspect]
     Active Substance: SUGAMMADEX
     Indication: Neuromuscular blockade
     Dosage: UNK

REACTIONS (2)
  - Respiratory arrest [Unknown]
  - Heart rate decreased [Unknown]
